FAERS Safety Report 6785850-9 (Version None)
Quarter: 2010Q2

REPORT INFORMATION
  Report Type: 
  Country: None (occurrence: None)
  Receive Date: 20100623
  Receipt Date: 20100611
  Transmission Date: 20101027
  Serious: Yes (Hospitalization, Other)
  Sender: FDA-Public Use
  Company Number: CA-PFIZER INC-2010052905

PATIENT
  Age: 64 Year
  Sex: Female
  Weight: 103 kg

DRUGS (9)
  1. ZELDOX [Suspect]
     Indication: BIPOLAR I DISORDER
     Dosage: 120 MG, 2X/DAY
     Route: 048
  2. ZELDOX [Suspect]
     Indication: SCHIZOAFFECTIVE DISORDER
  3. EPIVAL [Concomitant]
     Dosage: UNK
  4. DIVALPROEX SODIUM [Concomitant]
     Indication: BIPOLAR DISORDER
     Dosage: 1000 MG, 2X/DAY
     Route: 048
  5. LITHIUM [Concomitant]
     Indication: BIPOLAR DISORDER
     Dosage: 600 MG, AT BEDTIME
     Route: 048
  6. METFORMIN [Concomitant]
     Indication: TYPE 2 DIABETES MELLITUS
     Dosage: 850 MG, 3X/DAY
     Route: 048
  7. LIPIDIL [Concomitant]
     Indication: HYPERCHOLESTEROLAEMIA
     Dosage: 160 MG, 1X/DAY
     Route: 048
  8. ATENOLOL [Concomitant]
     Indication: HYPERTENSION
     Dosage: 50 MG, 1X/DAY
     Route: 048
     Dates: end: 20100401
  9. ASAPHEN [Concomitant]
     Dosage: 80 MG, 1X/DAY
     Route: 048

REACTIONS (7)
  - BLOOD PRESSURE DECREASED [None]
  - BRADYCARDIA [None]
  - COMA [None]
  - DEPRESSED LEVEL OF CONSCIOUSNESS [None]
  - MIOSIS [None]
  - SOMNOLENCE [None]
  - SYNCOPE [None]
